FAERS Safety Report 10600594 (Version 2)
Quarter: 2014Q4

REPORT INFORMATION
  Report Type: Spontaneous
  Country: CH (occurrence: CH)
  Receive Date: 20141124
  Receipt Date: 20141129
  Transmission Date: 20150529
  Serious: Yes (Hospitalization, Other)
  Sender: FDA-Public Use
  Company Number: CH-009507513-1411CHE009659

PATIENT
  Age: 42 Year
  Sex: Female

DRUGS (4)
  1. PREGABALIN. [Suspect]
     Active Substance: PREGABALIN
     Dosage: UNK, ONCE
     Route: 048
     Dates: start: 20130719, end: 20130719
  2. ACETAMINOPHEN (+) TRAMADOL HYDROCHLORIDE [Suspect]
     Active Substance: ACETAMINOPHEN\TRAMADOL HYDROCHLORIDE
     Dosage: UNK, ONCE
     Route: 048
     Dates: start: 20130719, end: 20130719
  3. ZOLPIDEM TARTRATE. [Suspect]
     Active Substance: ZOLPIDEM TARTRATE
     Dosage: 600 MG, ONCE
     Route: 048
     Dates: start: 20130719, end: 20130719
  4. TRYPTIZOL [Suspect]
     Active Substance: AMITRIPTYLINE HYDROCHLORIDE
     Dosage: UNK, ONCE
     Route: 048
     Dates: start: 20130719, end: 20130719

REACTIONS (3)
  - Suicide attempt [Recovered/Resolved]
  - Poisoning [Recovered/Resolved]
  - Intentional overdose [Unknown]

NARRATIVE: CASE EVENT DATE: 20130719
